FAERS Safety Report 6698148-4 (Version None)
Quarter: 2010Q2

REPORT INFORMATION
  Report Type: 
  Country: None (occurrence: None)
  Receive Date: 20100427
  Receipt Date: 20100414
  Transmission Date: 20101027
  Serious: Yes (Other)
  Sender: FDA-Public Use
  Company Number: US-PFIZER INC-2010048265

PATIENT
  Sex: Male
  Weight: 113.39 kg

DRUGS (4)
  1. CHANTIX [Suspect]
     Indication: SMOKING CESSATION THERAPY
     Dosage: 0.5 MG, 1X/DAY
     Route: 048
     Dates: start: 20091228
  2. CHANTIX [Suspect]
     Dosage: 1 MG, 2X/DAY
     Route: 048
     Dates: end: 20100324
  3. ATIVAN [Suspect]
     Indication: ANXIETY
     Dosage: UNK
     Dates: start: 20100301, end: 20100301
  4. BENICAR [Concomitant]
     Indication: HYPERTENSION

REACTIONS (7)
  - AMNESIA [None]
  - APHASIA [None]
  - DEPRESSED MOOD [None]
  - NAUSEA [None]
  - PERSONALITY CHANGE [None]
  - TACHYPHRENIA [None]
  - THINKING ABNORMAL [None]
